FAERS Safety Report 6795380-6 (Version None)
Quarter: 2010Q2

REPORT INFORMATION
  Report Type: 
  Country: None (occurrence: None)
  Receive Date: 20100625
  Receipt Date: 20100615
  Transmission Date: 20101027
  Serious: Yes (Hospitalization)
  Sender: FDA-Public Use
  Company Number: IT-JNJFOC-20100605318

PATIENT
  Sex: Female

DRUGS (6)
  1. IBUPROFEN [Suspect]
     Route: 048
  2. IBUPROFEN [Suspect]
     Indication: ABDOMINAL PAIN
     Route: 048
  3. WARFARIN [Suspect]
     Indication: ATRIAL FIBRILLATION
     Route: 048
  4. SENNA GLYCOSIDES [Concomitant]
     Indication: CONSTIPATION
     Route: 048
  5. PAROXETINE [Concomitant]
     Route: 048
  6. HALOPERIDOL [Concomitant]

REACTIONS (1)
  - INTERNATIONAL NORMALISED RATIO INCREASED [None]
